FAERS Safety Report 6270420-1 (Version None)
Quarter: 2009Q3

REPORT INFORMATION
  Report Type: 
  Country: None (occurrence: None)
  Receive Date: 20090716
  Receipt Date: 20090707
  Transmission Date: 20100115
  Serious: Yes (Other)
  Sender: FDA-Public Use
  Company Number: PHHY2008FR21975

PATIENT
  Sex: Female
  Weight: 85 kg

DRUGS (3)
  1. TASIGNA [Suspect]
     Indication: CHRONIC MYELOID LEUKAEMIA
     Dosage: 400 MG, QD
     Dates: start: 20080521, end: 20080710
  2. ROFERON-A [Concomitant]
     Dosage: 4.5 MIU, UNK
     Dates: start: 20080710, end: 20080908
  3. ROFERON-A [Concomitant]
     Dosage: 7 MIU, UNK

REACTIONS (2)
  - ABORTION INDUCED [None]
  - DRUG EXPOSURE DURING PREGNANCY [None]
